FAERS Safety Report 10895912 (Version 1)
Quarter: 2015Q1

REPORT INFORMATION
  Report Type: Spontaneous
  Country: JP (occurrence: JP)
  Receive Date: 20150307
  Receipt Date: 20150307
  Transmission Date: 20150721
  Serious: Yes (Death, Other)
  Sender: FDA-Public Use
  Company Number: PHHY2015JP022790

PATIENT
  Sex: Male
  Weight: 61 kg

DRUGS (7)
  1. CLARITHROMYCIN. [Interacting]
     Active Substance: CLARITHROMYCIN
     Indication: RASH
  2. KALETRA [Interacting]
     Active Substance: LOPINAVIR\RITONAVIR
     Indication: HIV INFECTION
     Route: 065
  3. DIPHENHYDRAMINE [Interacting]
     Active Substance: DIPHENHYDRAMINE
     Indication: PRODUCT USED FOR UNKNOWN INDICATION
     Route: 065
  4. SILDENAFIL. [Suspect]
     Active Substance: SILDENAFIL
     Indication: PRODUCT USED FOR UNKNOWN INDICATION
     Route: 065
  5. CLARITHROMYCIN. [Interacting]
     Active Substance: CLARITHROMYCIN
     Indication: RASH PRURITIC
     Route: 065
  6. CLARITHROMYCIN. [Interacting]
     Active Substance: CLARITHROMYCIN
     Indication: ORAL MUCOSAL ERUPTION
  7. EPZICOM [Interacting]
     Active Substance: ABACAVIR SULFATE\LAMIVUDINE
     Indication: HIV INFECTION
     Route: 065

REACTIONS (10)
  - Pulmonary congestion [Unknown]
  - Pulmonary oedema [Unknown]
  - Cardiac failure acute [Fatal]
  - Hepatic lesion [Unknown]
  - Mesenteric haematoma [Unknown]
  - Sudden cardiac death [Fatal]
  - Myocardial fibrosis [Unknown]
  - Arterial stenosis [Unknown]
  - Liver injury [Unknown]
  - Drug interaction [Unknown]
